FAERS Safety Report 19462307 (Version 1)
Quarter: 2021Q2

REPORT INFORMATION
  Report Type: Spontaneous
  Country: SE (occurrence: SE)
  Receive Date: 20210625
  Receipt Date: 20210625
  Transmission Date: 20210717
  Serious: Yes (Hospitalization)
  Sender: FDA-Public Use
  Company Number: SE-TEVA-2021-SE-1925626

PATIENT
  Age: 81 Year
  Sex: Female

DRUGS (1)
  1. CLOZAPINE. [Suspect]
     Active Substance: CLOZAPINE
     Route: 065
     Dates: end: 2021

REACTIONS (1)
  - General physical health deterioration [Recovering/Resolving]

NARRATIVE: CASE EVENT DATE: 20210503
